FAERS Safety Report 5695199-3 (Version None)
Quarter: 2008Q2

REPORT INFORMATION
  Report Type: 
  Country: None (occurrence: None)
  Receive Date: 20080404
  Receipt Date: 20080326
  Transmission Date: 20081010
  Serious: Yes (Other)
  Sender: FDA-Public Use
  Company Number: GB-PFIZER INC-2008027582

PATIENT
  Age: 81 Year
  Sex: Female
  Weight: 51.9 kg

DRUGS (5)
  1. DOXAZOSIN [Suspect]
     Indication: HYPERTENSION
     Route: 048
     Dates: start: 20080208, end: 20080220
  2. ALLOPURINOL [Concomitant]
     Route: 048
     Dates: start: 20020206, end: 20080206
  3. GAMOLENIC ACID [Concomitant]
     Route: 048
  4. SIMVASTATIN [Concomitant]
     Route: 048
  5. LEVOTHYROXINE SODIUM [Concomitant]
     Route: 048

REACTIONS (3)
  - DRUG INTOLERANCE [None]
  - DYSPNOEA [None]
  - NAUSEA [None]
